FAERS Safety Report 5960349-8 (Version None)
Quarter: 2008Q4

REPORT INFORMATION
  Report Type: 
  Country: None (occurrence: None)
  Receive Date: 20081120
  Receipt Date: 20081106
  Transmission Date: 20090506
  Serious: Yes (Other)
  Sender: FDA-Public Use
  Company Number: GR-ELI_LILLY_AND_COMPANY-GR200811001223

PATIENT
  Age: 44 Year
  Sex: Female

DRUGS (3)
  1. EVISTA [Suspect]
     Indication: OSTEOPOROSIS
     Dosage: 60 MG, DAILY (1/D)
     Route: 048
     Dates: start: 20081007, end: 20081031
  2. AUGMENTAN /00756801/ [Concomitant]
     Indication: EAR INFECTION
     Dosage: 500 MG, 2/D
     Route: 048
     Dates: start: 20081010
  3. CIPROFLOXACIN HCL [Concomitant]
     Indication: EAR INFECTION
     Dosage: 500 MG, 2/D
     Route: 048
     Dates: start: 20081010

REACTIONS (1)
  - GALACTORRHOEA [None]
